FAERS Safety Report 23970691 (Version 2)
Quarter: 2024Q3

REPORT INFORMATION
  Report Type: Spontaneous
  Country: US (occurrence: US)
  Receive Date: 20240613
  Receipt Date: 20240805
  Transmission Date: 20241017
  Serious: Yes (Other)
  Sender: SANOFI AVENTIS
  Company Number: US-SANOFI-02083989

PATIENT
  Age: 49 Year
  Sex: Male

DRUGS (3)
  1. DUPIXENT [Suspect]
     Active Substance: DUPILUMAB
     Indication: Asthma
     Dosage: UNK
  2. BUDESONIDE\FORMOTEROL [Concomitant]
     Active Substance: BUDESONIDE\FORMOTEROL
     Indication: Asthma
  3. MONTELUKAST [Concomitant]
     Active Substance: MONTELUKAST SODIUM
     Indication: Asthma

REACTIONS (6)
  - Pulmonary sarcoidosis [Recovering/Resolving]
  - Fatigue [Recovering/Resolving]
  - Inflammation [Recovering/Resolving]
  - Granuloma [Recovering/Resolving]
  - Lymphadenopathy mediastinal [Recovering/Resolving]
  - Hilar lymphadenopathy [Recovering/Resolving]
